FAERS Safety Report 14513203 (Version 1)
Quarter: 2018Q1

REPORT INFORMATION
  Report Type: Spontaneous
  Country: US (occurrence: US)
  Receive Date: 20180208
  Receipt Date: 20180208
  Transmission Date: 20180509
  Serious: Yes (Other)
  Sender: FDA-Public Use
  Company Number: None

PATIENT
  Age: 88 Year
  Sex: Male
  Weight: 74.25 kg

DRUGS (9)
  1. EDCRIN [Concomitant]
  2. VITAMIN D3 [Concomitant]
     Active Substance: CHOLECALCIFEROL
  3. TERAZOSIN [Suspect]
     Active Substance: TERAZOSIN\TERAZOSIN HYDROCHLORIDE
  4. MAGNESIUM OXIDE. [Concomitant]
     Active Substance: MAGNESIUM OXIDE
  5. VELTASSA [Suspect]
     Active Substance: PATIROMER
     Indication: BLOOD POTASSIUM INCREASED
     Dosage: ?          QUANTITY:1 PACKAGE;?
     Route: 048
     Dates: start: 20171009, end: 20171205
  6. SYNTHROID [Concomitant]
     Active Substance: LEVOTHYROXINE SODIUM
  7. VITAMIN B12 [Concomitant]
     Active Substance: CYANOCOBALAMIN
  8. BUMEX [Concomitant]
     Active Substance: BUMETANIDE
  9. COREG [Concomitant]
     Active Substance: CARVEDILOL

REACTIONS (3)
  - Proctalgia [None]
  - Faecaloma [None]
  - Rectal haemorrhage [None]

NARRATIVE: CASE EVENT DATE: 20180105
